FAERS Safety Report 9558930 (Version 2)
Quarter: 2013Q3

REPORT INFORMATION
  Report Type: Spontaneous
  Country: SE (occurrence: SE)
  Receive Date: 20130927
  Receipt Date: 20130927
  Transmission Date: 20140515
  Serious: Yes (Other)
  Sender: FDA-Public Use
  Company Number: SE-ROCHE-1268465

PATIENT
  Age: 74 Year
  Sex: Male

DRUGS (4)
  1. MABTHERA [Suspect]
     Indication: GRANULOMATOSIS WITH POLYANGIITIS
     Route: 065
     Dates: start: 201107
  2. MABTHERA [Suspect]
     Route: 065
     Dates: start: 201212
  3. MABTHERA [Suspect]
     Route: 065
     Dates: start: 20130523, end: 20130607
  4. PREDNISOLON [Concomitant]

REACTIONS (2)
  - Atrial fibrillation [Unknown]
  - Pneumonia [Recovering/Resolving]
